FAERS Safety Report 16948386 (Version 1)
Quarter: 2019Q4

REPORT INFORMATION
  Report Type: Spontaneous
  Country: TW (occurrence: TW)
  Receive Date: 20191022
  Receipt Date: 20191022
  Transmission Date: 20200122
  Serious: Yes (Death)
  Sender: FDA-Public Use
  Company Number: TW-ASTRAZENECA-2019SF48726

PATIENT
  Age: 69 Year
  Sex: Female

DRUGS (1)
  1. LYNPARZA [Suspect]
     Active Substance: OLAPARIB
     Indication: BREAST CANCER
     Route: 048
     Dates: start: 20161205, end: 201702

REACTIONS (2)
  - Carbohydrate antigen 125 increased [Unknown]
  - Fatigue [Fatal]

NARRATIVE: CASE EVENT DATE: 201702
